FAERS Safety Report 24252435 (Version 1)
Quarter: 2024Q3

REPORT INFORMATION
  Report Type: Spontaneous
  Country: US (occurrence: US)
  Receive Date: 20240827
  Receipt Date: 20240827
  Transmission Date: 20241017
  Serious: No
  Sender: ACCORD
  Company Number: US-Accord-401797

PATIENT
  Age: 79 Year
  Sex: Male

DRUGS (3)
  1. BICALUTAMIDE [Suspect]
     Active Substance: BICALUTAMIDE
     Indication: Prostate cancer
     Route: 048
     Dates: start: 202308
  2. RELUGOLIX [Suspect]
     Active Substance: RELUGOLIX
     Indication: Prostate cancer
     Dosage: STRENGTH:120 MILLIGRAM, ONE TIME DOSE
     Route: 048
     Dates: start: 20231118, end: 20231118
  3. RELUGOLIX [Suspect]
     Active Substance: RELUGOLIX
     Indication: Prostate cancer
     Dosage: STRENGTH:120 MILLIGRAM?120 MILLIGRAM, QD
     Route: 048
     Dates: start: 20231119, end: 20231216

REACTIONS (2)
  - Blood testosterone increased [Unknown]
  - Therapy interrupted [Unknown]

NARRATIVE: CASE EVENT DATE: 20231217
